FAERS Safety Report 4403422-8 (Version None)
Quarter: 2004Q3

REPORT INFORMATION
  Report Type: 
  Country: None (occurrence: None)
  Receive Date: 20040715
  Receipt Date: 20040706
  Transmission Date: 20050211
  Serious: Yes (Death)
  Sender: FDA-Public Use
  Company Number: 163-20785-03070006

PATIENT
  Age: 56 Year
  Sex: Male

DRUGS (14)
  1. THALOMID [Suspect]
     Indication: CHRONIC MYELOID LEUKAEMIA
     Dosage: 100 MG, DAILY, ORAL
     Route: 048
     Dates: start: 20011029
  2. CEPHALEXIN [Concomitant]
  3. SIMVASTATIN [Concomitant]
  4. FUROSEMIDE [Concomitant]
  5. ACETAZOLAMIDE [Concomitant]
  6. MUPIROCIN [Concomitant]
  7. FLUOROURACIL [Concomitant]
  8. RABEPRAZOLE SODIUM [Concomitant]
  9. GLIMEPIRIDE [Concomitant]
  10. LEVOTHYROXINE SODIUM [Concomitant]
  11. PAMIDRONATE DISODIUM [Concomitant]
  12. CYCLOSPORINE [Concomitant]
  13. CALCIUM ACETATE [Concomitant]
  14. KCL (POTASSIUM CHLORIDE) [Concomitant]

REACTIONS (2)
  - COMPLICATIONS OF TRANSPLANT SURGERY [None]
  - HEADACHE [None]
